FAERS Safety Report 21226170 (Version 1)
Quarter: 2022Q3

REPORT INFORMATION
  Report Type: Spontaneous
  Country: US (occurrence: US)
  Receive Date: 20220818
  Receipt Date: 20220818
  Transmission Date: 20221027
  Serious: No
  Sender: FDA-Public Use
  Company Number: US-CADILA HEALTHCARE LIMITED-US-ZYDUS-074988

PATIENT

DRUGS (3)
  1. ANASTROZOLE [Suspect]
     Active Substance: ANASTROZOLE
     Indication: Oestrogen therapy
     Dosage: 1 MILLIGRAM, QD
     Route: 065
     Dates: start: 202108
  2. CLOBETASOL PROPIONATE [Suspect]
     Active Substance: CLOBETASOL PROPIONATE
     Indication: Lichen sclerosus
     Dosage: 0.05 %
     Route: 061
     Dates: end: 20211004
  3. CLOBETASOL PROPIONATE [Suspect]
     Active Substance: CLOBETASOL PROPIONATE
     Indication: Off label use

REACTIONS (7)
  - Genital atrophy [Not Recovered/Not Resolved]
  - Genital burning sensation [Unknown]
  - Pain [Not Recovered/Not Resolved]
  - Vulvovaginal dryness [Not Recovered/Not Resolved]
  - Product use in unapproved indication [Recovered/Resolved]
  - Vulvovaginal rash [Unknown]
  - Rash pustular [Unknown]

NARRATIVE: CASE EVENT DATE: 20210101
